FAERS Safety Report 12606400 (Version 1)
Quarter: 2016Q3

REPORT INFORMATION
  Report Type: Spontaneous
  Country: US (occurrence: None)
  Receive Date: 20160728
  Receipt Date: 20160728
  Transmission Date: 20161109
  Serious: No
  Sender: FDA-Public Use
  Company Number: None

PATIENT
  Age: 29 Year
  Sex: Female
  Weight: 74.84 kg

DRUGS (8)
  1. VENLAFAXINE HCL [Concomitant]
     Active Substance: VENLAFAXINE HYDROCHLORIDE
  2. ZECUITY [Suspect]
     Active Substance: SUMATRIPTAN SUCCINATE
     Indication: HEADACHE
     Dosage: 6.5MG/4HRS 1 PRN FOR HEADACHES TRANSDERMAL
     Route: 062
  3. COQ10 [Concomitant]
     Active Substance: UBIDECARENONE
  4. ZECUITY [Suspect]
     Active Substance: SUMATRIPTAN SUCCINATE
     Indication: POST CONCUSSION SYNDROME
     Dosage: 6.5MG/4HRS 1 PRN FOR HEADACHES TRANSDERMAL
     Route: 062
  5. TOPIRAMATE. [Concomitant]
     Active Substance: TOPIRAMATE
  6. DUEXIS [Concomitant]
     Active Substance: FAMOTIDINE\IBUPROFEN
  7. TUMERIC [Concomitant]
     Active Substance: TURMERIC
  8. GABAPENTIN. [Concomitant]
     Active Substance: GABAPENTIN

REACTIONS (3)
  - Product quality issue [None]
  - Burning sensation [None]
  - Skin discolouration [None]
